FAERS Safety Report 9834537 (Version 1)
Quarter: 2014Q1

REPORT INFORMATION
  Report Type: Spontaneous
  Country: US (occurrence: US)
  Receive Date: 20140122
  Receipt Date: 20140122
  Transmission Date: 20141002
  Serious: Yes (Hospitalization, Other)
  Sender: FDA-Public Use
  Company Number: US-TEVA-416633USA

PATIENT
  Sex: Female

DRUGS (1)
  1. SALBUTAMOL W/IPRATROPIUM [Suspect]

REACTIONS (2)
  - Dyspnoea [Unknown]
  - Loss of consciousness [Unknown]
